FAERS Safety Report 7372195-1 (Version None)
Quarter: 2011Q1

REPORT INFORMATION
  Report Type: 
  Country: None (occurrence: None)
  Receive Date: 20110324
  Receipt Date: 20110315
  Transmission Date: 20110831
  Serious: Yes (Hospitalization)
  Sender: FDA-Public Use
  Company Number: NZ-PURDUE-USA-2011-0065739

PATIENT

DRUGS (2)
  1. NORSPAN (NDA 21-306) [Suspect]
     Indication: PAIN
     Route: 062
  2. FOSAMAX [Concomitant]
     Indication: PRODUCT USED FOR UNKNOWN INDICATION

REACTIONS (2)
  - PANCREATITIS [None]
  - PORTAL VEIN THROMBOSIS [None]
